FAERS Safety Report 4323787-5 (Version None)
Quarter: 2004Q1

REPORT INFORMATION
  Report Type: 
  Country: None (occurrence: None)
  Receive Date: 20040325
  Receipt Date: 20040325
  Transmission Date: 20041129
  Serious: Yes (Other)
  Sender: FDA-Public Use
  Company Number: None

PATIENT
  Sex: Female
  Weight: 90.2658 kg

DRUGS (7)
  1. ZICAM OTC NASAL SPRAY [Suspect]
     Indication: NASOPHARYNGITIS
     Dosage: AS DIRECTED ON BOTTLE
     Dates: start: 20031201, end: 20040101
  2. SYNTHROID [Concomitant]
  3. MOTRIN [Concomitant]
  4. ZESTORECTIC [Concomitant]
  5. VIT E [Concomitant]
  6. FOSAMAX [Concomitant]
  7. TYLENOL (CAPLET) [Concomitant]

REACTIONS (2)
  - AGEUSIA [None]
  - ANOSMIA [None]
